FAERS Safety Report 15100600 (Version 22)
Quarter: 2022Q1

REPORT INFORMATION
  Report Type: Spontaneous
  Country: CA (occurrence: CA)
  Receive Date: 20180703
  Receipt Date: 20220331
  Transmission Date: 20220423
  Serious: Yes (Other)
  Sender: FDA-Public Use
  Company Number: CA-CELLTRION INC.-2018CA020081

PATIENT

DRUGS (30)
  1. INFLECTRA [Suspect]
     Active Substance: INFLIXIMAB-DYYB
     Indication: Crohn^s disease
     Dosage: 360 MG, 0, 2, 6, THEN EVERY 8 WEEKS
     Route: 042
     Dates: start: 20180503
  2. INFLECTRA [Suspect]
     Active Substance: INFLIXIMAB-DYYB
     Dosage: 360 MG, 0, 2, 6, THEN EVERY 8 WEEKS
     Route: 042
     Dates: start: 20180517
  3. INFLECTRA [Suspect]
     Active Substance: INFLIXIMAB-DYYB
     Dosage: 360 MG, 0, 2, 6, THEN EVERY 8 WEEKS
     Route: 042
     Dates: start: 20180619
  4. INFLECTRA [Suspect]
     Active Substance: INFLIXIMAB-DYYB
     Dosage: 360 MG, 0, 2, 6, THEN EVERY 8 WEEKS
     Route: 042
     Dates: start: 20180814
  5. INFLECTRA [Suspect]
     Active Substance: INFLIXIMAB-DYYB
     Dosage: 360 MG, EVERY 8 WEEKS
     Route: 042
     Dates: start: 20181009
  6. INFLECTRA [Suspect]
     Active Substance: INFLIXIMAB-DYYB
     Dosage: 360 MG, EVERY 8 WEEKS
     Route: 042
     Dates: start: 20181204
  7. INFLECTRA [Suspect]
     Active Substance: INFLIXIMAB-DYYB
     Dosage: 360 MG, EVERY 8 WEEKS
     Route: 042
     Dates: start: 20190213
  8. INFLECTRA [Suspect]
     Active Substance: INFLIXIMAB-DYYB
     Dosage: 360 MG, EVERY 8 WEEKS
     Route: 042
     Dates: start: 20190506
  9. INFLECTRA [Suspect]
     Active Substance: INFLIXIMAB-DYYB
     Dosage: 360 MG, EVERY 8 WEEKS
     Route: 042
     Dates: start: 20190702
  10. INFLECTRA [Suspect]
     Active Substance: INFLIXIMAB-DYYB
     Dosage: 360 MG, EVERY 8 WEEKS
     Route: 042
     Dates: start: 20190828
  11. INFLECTRA [Suspect]
     Active Substance: INFLIXIMAB-DYYB
     Dosage: 420 MG EVERY 8 WEEKS
     Route: 042
     Dates: start: 20191022
  12. INFLECTRA [Suspect]
     Active Substance: INFLIXIMAB-DYYB
     Dosage: 420 MG, EVERY 8 WEEKS
     Dates: start: 20191209
  13. INFLECTRA [Suspect]
     Active Substance: INFLIXIMAB-DYYB
     Dosage: 420 MG, EVERY 8 WEEKS
     Dates: start: 20191209
  14. INFLECTRA [Suspect]
     Active Substance: INFLIXIMAB-DYYB
     Dosage: 420 MG, EVERY 8 WEEKS
     Dates: start: 20200318
  15. INFLECTRA [Suspect]
     Active Substance: INFLIXIMAB-DYYB
     Dosage: 420 MG, EVERY 8 WEEKS
     Dates: start: 20200513
  16. INFLECTRA [Suspect]
     Active Substance: INFLIXIMAB-DYYB
     Dosage: 420 MG, EVERY 8 WEEKS
     Dates: start: 20211116
  17. ACETAMINOPHEN [Concomitant]
     Active Substance: ACETAMINOPHEN
     Indication: Premedication
     Dosage: 1000 MG, UNK
     Route: 048
  18. ACETAMINOPHEN [Concomitant]
     Active Substance: ACETAMINOPHEN
     Dosage: 1000 MG, UNK
     Dates: start: 20190702, end: 20190702
  19. ACETAMINOPHEN [Concomitant]
     Active Substance: ACETAMINOPHEN
     Dosage: 100 MG, UNK
     Route: 048
     Dates: start: 20190828
  20. ACETAMINOPHEN [Concomitant]
     Active Substance: ACETAMINOPHEN
     Dosage: 100 MG, UNK
     Route: 048
     Dates: start: 20191022, end: 20191022
  21. ACETAMINOPHEN [Concomitant]
     Active Substance: ACETAMINOPHEN
     Dosage: 100 MG, UNK
     Route: 048
     Dates: start: 20200513, end: 20200513
  22. BRICANYL [Concomitant]
     Active Substance: TERBUTALINE SULFATE
     Indication: Respiratory disorder
     Dosage: 0.5 MG/ DOSE- 1-2 INHALATIONS (1X/DAY) AS NEEDED
     Route: 055
  23. DIPHENHYDRAMINE [Concomitant]
     Active Substance: DIPHENHYDRAMINE
     Indication: Premedication
     Dosage: 50 MG, UNK
     Route: 048
  24. DIPHENHYDRAMINE [Concomitant]
     Active Substance: DIPHENHYDRAMINE
     Dosage: 50 MG, UNK
     Dates: start: 20190702, end: 20190702
  25. DIPHENHYDRAMINE [Concomitant]
     Active Substance: DIPHENHYDRAMINE
     Dosage: 50 MG, UNK
     Route: 048
     Dates: start: 20190828
  26. DIPHENHYDRAMINE [Concomitant]
     Active Substance: DIPHENHYDRAMINE
     Dosage: 50 MG, UNK
     Route: 048
     Dates: start: 20191022, end: 20191022
  27. DIPHENHYDRAMINE [Concomitant]
     Active Substance: DIPHENHYDRAMINE
     Dosage: 50 MG, UNK
     Route: 048
     Dates: start: 20200513, end: 20200513
  28. PAROXETINE [Concomitant]
     Active Substance: PAROXETINE
     Dosage: 20 MG, 1X/DAY
     Route: 048
  29. SYNTHROID [Concomitant]
     Active Substance: LEVOTHYROXINE SODIUM
     Dosage: 0.1 MG, 1X/DAY
     Route: 048
  30. ACLIDINIUM BROMIDE [Concomitant]
     Active Substance: ACLIDINIUM BROMIDE
     Indication: Respiratory disorder
     Dosage: 400 UG, 2X/DAY
     Route: 055

REACTIONS (15)
  - Hypertension [Unknown]
  - Fistula [Unknown]
  - Glaucoma [Unknown]
  - Off label use [Unknown]
  - Intentional product use issue [Unknown]
  - Blood pressure increased [Unknown]
  - Heart rate decreased [Unknown]
  - Nausea [Unknown]
  - Nasopharyngitis [Unknown]
  - Pain [Unknown]
  - Renal pain [Unknown]
  - Swelling [Unknown]
  - Vomiting [Unknown]
  - Exposure to SARS-CoV-2 [Unknown]
  - Gastroenteritis [Recovered/Resolved]

NARRATIVE: CASE EVENT DATE: 20180503
